FAERS Safety Report 24736159 (Version 1)
Quarter: 2024Q4

REPORT INFORMATION
  Report Type: Spontaneous
  Country: CA (occurrence: CA)
  Receive Date: 20241216
  Receipt Date: 20241216
  Transmission Date: 20250115
  Serious: Yes (Other)
  Sender: Haleon PLC
  Company Number: CA-HALEON-2214797

PATIENT
  Age: 72 Year
  Sex: Male

DRUGS (2)
  1. FLUTICASONE [Suspect]
     Active Substance: FLUTICASONE
     Indication: Chronic obstructive pulmonary disease
  2. COBICISTAT [Suspect]
     Active Substance: COBICISTAT
     Indication: Product used for unknown indication

REACTIONS (3)
  - Adrenal insufficiency [Unknown]
  - Drug interaction [Unknown]
  - Orthostatic hypotension [Unknown]
